FAERS Safety Report 12327977 (Version 1)
Quarter: 2016Q2

REPORT INFORMATION
  Report Type: Spontaneous
  Country: US (occurrence: US)
  Receive Date: 20160503
  Receipt Date: 20160503
  Transmission Date: 20160815
  Serious: No
  Sender: FDA-Public Use
  Company Number: US-TARO-2016TAR00213

PATIENT
  Age: 69 Year
  Sex: Male
  Weight: 83.9 kg

DRUGS (10)
  1. VITAMIN B12 [Concomitant]
     Active Substance: CYANOCOBALAMIN
     Dosage: 1 ML, 1X/MONTH
     Route: 051
  2. CRESTOR [Concomitant]
     Active Substance: ROSUVASTATIN CALCIUM
     Dosage: 40 MG, 1X/DAY
  3. ELIQUIS [Concomitant]
     Active Substance: APIXABAN
     Dosage: 5 MG, 2X/DAY
  4. FLAXSEED [Concomitant]
     Active Substance: FLAX SEED
     Dosage: 1200 MG, 1X/DAY
  5. MULTIVITAMIN [Concomitant]
     Active Substance: VITAMINS
     Dosage: UNK
  6. AMITRIPTYLINE [Concomitant]
     Active Substance: AMITRIPTYLINE
     Dosage: 75 MG, 1X/DAY
  7. BABY ASPIRIN [Concomitant]
     Active Substance: ASPIRIN
     Dosage: UNK, 1X/DAY
  8. RAPAFLO [Concomitant]
     Active Substance: SILODOSIN
     Dosage: 8 MG, 1X/DAY
  9. CARBAMAZEPINE EXTENDED RELEASE TABLETS USP 400MG [Suspect]
     Active Substance: CARBAMAZEPINE
     Indication: SEIZURE
     Dosage: 400 MG, 2X/DAY
     Route: 048
     Dates: start: 20160214, end: 20160302
  10. MOTRIN [Concomitant]
     Active Substance: IBUPROFEN
     Dosage: 800 MG, 1X/DAY

REACTIONS (4)
  - Nervousness [Recovered/Resolved]
  - Feeling abnormal [Recovered/Resolved]
  - Anxiety [Recovered/Resolved]
  - Drug effect increased [Not Recovered/Not Resolved]

NARRATIVE: CASE EVENT DATE: 201602
